FAERS Safety Report 10167065 (Version 1)
Quarter: 2014Q2

REPORT INFORMATION
  Report Type: Spontaneous
  Country: US (occurrence: US)
  Receive Date: 20140512
  Receipt Date: 20140512
  Transmission Date: 20141212
  Serious: Yes (Congenital Anomaly, Other)
  Sender: FDA-Public Use
  Company Number: US-PFIZER INC-2014126613

PATIENT
  Sex: Male

DRUGS (12)
  1. ZOLOFT [Suspect]
     Dosage: UNK
     Route: 064
     Dates: start: 20070531, end: 20080312
  2. SERTRALINE HCL [Suspect]
     Dosage: UNK
     Route: 064
     Dates: start: 20070531, end: 20080312
  3. NATALCARE PLUS [Concomitant]
     Dosage: UNK
     Route: 064
  4. HYDROCODONE [Concomitant]
     Dosage: UNK
     Route: 064
  5. ZOLPIDEM [Concomitant]
     Dosage: UNK
     Route: 064
  6. NITROFURANTOIN [Concomitant]
     Dosage: UNK
     Route: 064
  7. IBUPROFEN [Concomitant]
     Dosage: UNK
     Route: 064
  8. PROMETHAZINE W/CODEINE [Concomitant]
     Dosage: UNK
     Route: 064
  9. XANAX [Concomitant]
     Dosage: UNK
     Route: 064
  10. ACETAMINOPHEN W/CODEINE [Concomitant]
     Dosage: UNK
     Route: 064
  11. CLINDAMYCIN [Concomitant]
     Dosage: UNK
     Route: 064
  12. ACETAMINOPHEN WITH CODEINE #3 [Concomitant]
     Dosage: UNK
     Route: 064

REACTIONS (4)
  - Maternal exposure during pregnancy [Unknown]
  - Ear malformation [Unknown]
  - Deafness congenital [Unknown]
  - Cryptorchism [Unknown]
